FAERS Safety Report 6548980-2 (Version None)
Quarter: 2010Q1

REPORT INFORMATION
  Report Type: 
  Country: None (occurrence: None)
  Receive Date: 20100119
  Receipt Date: 20100104
  Transmission Date: 20100710
  Serious: Yes (Life-Threatening, Hospitalization)
  Sender: FDA-Public Use
  Company Number: FKO201000002

PATIENT
  Sex: Male

DRUGS (3)
  1. OXALIPLATIN [Suspect]
     Indication: COLON CANCER
     Dosage: (150 MG) INTRAVENOUS
     Route: 042
     Dates: start: 20090714, end: 20091207
  2. FLUOROURACIL [Suspect]
     Dosage: (700 MG) INTRAVENOUS, (1000 MG) INTRAVENOUS
     Route: 042
     Dates: start: 20090714, end: 20091208
  3. FOLINSAERE (FOLINIC ACID) (FOLINIC ACID) [Concomitant]

REACTIONS (2)
  - DYSPNOEA [None]
  - MYOCARDIAL INFARCTION [None]
